FAERS Safety Report 18664176 (Version 4)
Quarter: 2021Q1

REPORT INFORMATION
  Report Type: Report from Study
  Country: US (occurrence: US)
  Receive Date: 20201225
  Receipt Date: 20210331
  Transmission Date: 20210419
  Serious: Yes (Other)
  Sender: FDA-Public Use
  Company Number: US-TAKEDA-2020TUS059982

PATIENT
  Sex: Female

DRUGS (1)
  1. VEDOLIZUMAB [Suspect]
     Active Substance: VEDOLIZUMAB
     Indication: COLITIS ULCERATIVE
     Dosage: 300 MILLIGRAM
     Route: 042
     Dates: start: 20200901

REACTIONS (5)
  - Nausea [Recovered/Resolved]
  - Colitis ulcerative [Not Recovered/Not Resolved]
  - Urticaria [Unknown]
  - Frequent bowel movements [Unknown]
  - Rash [Unknown]
